FAERS Safety Report 9810771 (Version 1)
Quarter: 2014Q1

REPORT INFORMATION
  Report Type: Spontaneous
  Country: GB (occurrence: US)
  Receive Date: 20140110
  Receipt Date: 20140110
  Transmission Date: 20141002
  Serious: Yes (Hospitalization)
  Sender: FDA-Public Use
  Company Number: GB-SANOFI-AVENTIS-2012SA090334

PATIENT
  Age: 51 Year
  Sex: Female
  Weight: 81.2 kg

DRUGS (15)
  1. CLOPIDOGREL BISULFATE [Suspect]
     Indication: MYOCARDIAL INFARCTION
     Dosage: FREQUENCY: UNK
     Route: 065
     Dates: start: 20080917, end: 20090303
  2. ASPIRIN [Suspect]
     Indication: MYOCARDIAL INFARCTION
     Dosage: FREQUENCY: UNK
     Route: 065
     Dates: start: 20080916, end: 20090903
  3. BLINDED THERAPY [Concomitant]
     Route: 048
     Dates: start: 20081119
  4. ROSUVASTATIN [Concomitant]
     Dates: start: 20081225
  5. METOPROLOL [Concomitant]
     Dates: start: 20090203
  6. LISINOPRIL [Concomitant]
     Dates: start: 20080918
  7. METFORMIN [Concomitant]
     Dates: start: 20080929
  8. VARENICLINE [Concomitant]
     Dates: start: 20090929
  9. TRAZODONE [Concomitant]
     Dates: start: 20080809
  10. HYDROXYZINE HYDROCHLORIDE [Concomitant]
     Dates: start: 20080809
  11. MULTIVITAMINS [Concomitant]
     Dates: start: 20081119
  12. THE VISION FORMULA [Concomitant]
     Dates: start: 20081218
  13. VENLAFAXINE HYDROCHLORIDE [Concomitant]
     Dates: start: 20080929
  14. OMEGA 3 [Concomitant]
     Dates: start: 20081009
  15. FAMOTIDINE [Concomitant]
     Dates: start: 20090215

REACTIONS (1)
  - Gastrointestinal vascular malformation [Recovered/Resolved]
